FAERS Safety Report 10469481 (Version 1)
Quarter: 2014Q3

REPORT INFORMATION
  Report Type: Spontaneous
  Country: US (occurrence: None)
  Receive Date: 20140904
  Receipt Date: 20140904
  Transmission Date: 20150326
  Serious: No
  Sender: FDA-Public Use
  Company Number: 229176

PATIENT
  Sex: Female

DRUGS (1)
  1. PICATO [Suspect]
     Active Substance: INGENOL MEBUTATE
     Indication: ACTINIC KERATOSIS
     Route: 061
     Dates: start: 20140713, end: 20140715

REACTIONS (5)
  - Application site erythema [None]
  - Inappropriate schedule of drug administration [None]
  - Application site vesicles [None]
  - Application site exfoliation [None]
  - Application site reaction [None]

NARRATIVE: CASE EVENT DATE: 20140315
